FAERS Safety Report 9172012 (Version 5)
Quarter: 2013Q3

REPORT INFORMATION
  Report Type: Spontaneous
  Country: US (occurrence: US)
  Receive Date: 20130319
  Receipt Date: 20130808
  Transmission Date: 20140515
  Serious: Yes (Other)
  Sender: FDA-Public Use
  Company Number: US-PFIZER INC-2013090206

PATIENT
  Age: 56 Year
  Sex: Female
  Weight: 47.62 kg

DRUGS (2)
  1. LYRICA [Suspect]
     Indication: FIBROMYALGIA
     Dosage: 75 MG, 3X/DAY
     Dates: end: 20130611
  2. LYRICA [Suspect]
     Dosage: 75 MG, 3X/DAY
     Dates: start: 2013

REACTIONS (11)
  - Multiple sclerosis [Unknown]
  - Nervous system disorder [Unknown]
  - Nasopharyngitis [Unknown]
  - Headache [Unknown]
  - Nasal congestion [Unknown]
  - Malaise [Unknown]
  - Pain [Unknown]
  - Chest pain [Unknown]
  - Insomnia [Unknown]
  - Fatigue [Unknown]
  - Rhinorrhoea [Unknown]
